FAERS Safety Report 4479404-7 (Version None)
Quarter: 2004Q4

REPORT INFORMATION
  Report Type: 
  Country: None (occurrence: None)
  Receive Date: 20041015
  Receipt Date: 20040929
  Transmission Date: 20050328
  Serious: Yes (Other)
  Sender: FDA-Public Use
  Company Number: 2004236544JP

PATIENT
  Age: 69 Year
  Sex: Female

DRUGS (8)
  1. SOLU-MEDROL [Suspect]
  2. PREDNISOLONE [Concomitant]
  3. AZATHIOPRINE [Concomitant]
  4. NICOTINAMIDE [Concomitant]
  5. MINOCYCLINE HCL [Concomitant]
  6. DDS [Concomitant]
  7. TETRACYCLINE [Concomitant]
  8. CYCLOSPORINE [Concomitant]

REACTIONS (4)
  - BACK PAIN [None]
  - DEPRESSION [None]
  - DRUG INTOLERANCE [None]
  - HYPERGLYCAEMIA [None]
